FAERS Safety Report 4535537-8 (Version None)
Quarter: 2004Q4

REPORT INFORMATION
  Report Type: 
  Country: None (occurrence: None)
  Receive Date: 20041214
  Receipt Date: 20040913
  Transmission Date: 20050328
  Serious: No
  Sender: FDA-Public Use
  Company Number: USA040978028

PATIENT
  Age: 51 Year
  Sex: Male
  Weight: 70 kg

DRUGS (1)
  1. CIALIS [Suspect]
     Dosage: 10 MG
     Dates: start: 20040910

REACTIONS (2)
  - BACK PAIN [None]
  - MYALGIA [None]
